FAERS Safety Report 15143183 (Version 1)
Quarter: 2018Q3

REPORT INFORMATION
  Report Type: Spontaneous
  Country: DE (occurrence: DE)
  Receive Date: 20180713
  Receipt Date: 20180713
  Transmission Date: 20181010
  Serious: Yes (Hospitalization, Other)
  Sender: FDA-Public Use
  Company Number: PHHY2017DE202589

PATIENT
  Age: 34 Year
  Sex: Male

DRUGS (10)
  1. KALIUM DURULE [Concomitant]
     Indication: PRODUCT USED FOR UNKNOWN INDICATION
     Dosage: 1 DF, UNK (1 SACHET)
     Route: 065
  2. QUETIAPINE. [Suspect]
     Active Substance: QUETIAPINE
     Dosage: 1 DF (100 TO 300 MG), UNK
     Route: 048
     Dates: start: 20161214
  3. ARIPIPRAZOLE. [Suspect]
     Active Substance: ARIPIPRAZOLE
     Dosage: 1 DF  (UPTO 30 MG FROM 11?AUG (YEAR UNKNOWN) TO 09 SEP 2016), UNK
     Route: 048
     Dates: end: 20160909
  4. QUETIAPINE. [Suspect]
     Active Substance: QUETIAPINE
     Dosage: 1 DF (UP TO 400MG 11?AUG (YEAR UNKNOWN)), UNK
     Route: 048
     Dates: end: 20160909
  5. KALIUM DURULE [Concomitant]
     Dosage: 1 DF, QD (1 DF = 1 POUCH)
     Route: 048
     Dates: start: 20161214
  6. ARIPIPRAZOLE. [Suspect]
     Active Substance: ARIPIPRAZOLE
     Indication: PRODUCT USED FOR UNKNOWN INDICATION
     Dosage: 1 DF, UNK
     Route: 048
  7. ARIPIPRAZOLE. [Suspect]
     Active Substance: ARIPIPRAZOLE
     Dosage: 20 MG, UNK
     Route: 048
  8. ARIPIPRAZOLE. [Suspect]
     Active Substance: ARIPIPRAZOLE
     Dosage: 1 DF (5 MG TO 10 MG), UNK
     Route: 048
     Dates: start: 20161214
  9. LEVETIRACETAM. [Suspect]
     Active Substance: LEVETIRACETAM
     Indication: EPILEPSY
     Dosage: 500 MG, QD
     Route: 065
  10. QUETIAPINE. [Suspect]
     Active Substance: QUETIAPINE
     Indication: PRODUCT USED FOR UNKNOWN INDICATION
     Dosage: 1 DF, UNK
     Route: 048

REACTIONS (2)
  - Epilepsy [Recovered/Resolved]
  - Stupor [Unknown]

NARRATIVE: CASE EVENT DATE: 20161215
